FAERS Safety Report 16707902 (Version 5)
Quarter: 2020Q2

REPORT INFORMATION
  Report Type: Spontaneous
  Country: US (occurrence: US)
  Receive Date: 20190815
  Receipt Date: 20200522
  Transmission Date: 20200713
  Serious: Yes (Disabling)
  Sender: FDA-Public Use
  Company Number: US-009507513-1908USA006153

PATIENT
  Sex: Female

DRUGS (4)
  1. ASMANEX [Suspect]
     Active Substance: MOMETASONE FUROATE
     Dosage: 440 MCG BID
     Route: 055
     Dates: start: 20190717
  2. ASMANEX [Suspect]
     Active Substance: MOMETASONE FUROATE
     Dosage: 440 MCG BID
     Route: 055
     Dates: start: 20190717
  3. ASMANEX [Suspect]
     Active Substance: MOMETASONE FUROATE
     Indication: ASTHMA
     Dosage: 440 MCG BID
     Route: 055
     Dates: start: 20140506
  4. ASMANEX [Suspect]
     Active Substance: MOMETASONE FUROATE
     Dosage: 440 MCG BID
     Route: 055
     Dates: start: 202001

REACTIONS (12)
  - Heart valve replacement [Unknown]
  - Fatigue [Not Recovered/Not Resolved]
  - Dyspnoea [Not Recovered/Not Resolved]
  - Circumstance or information capable of leading to medication error [Unknown]
  - Device malfunction [Unknown]
  - Inappropriate schedule of product administration [Unknown]
  - Hypertension [Not Recovered/Not Resolved]
  - Arthritis [Not Recovered/Not Resolved]
  - Product dose omission [Unknown]
  - Cardiac disorder [Not Recovered/Not Resolved]
  - Product quality issue [Unknown]
  - Poor quality device used [Unknown]

NARRATIVE: CASE EVENT DATE: 2019
